FAERS Safety Report 6516649-6 (Version None)
Quarter: 2009Q4

REPORT INFORMATION
  Report Type: 
  Country: None (occurrence: None)
  Receive Date: 20091223
  Receipt Date: 20091215
  Transmission Date: 20100525
  Serious: Yes (Disabling, Other)
  Sender: FDA-Public Use
  Company Number: US-MERCK-0908USA00768

PATIENT
  Age: 69 Year
  Sex: Female

DRUGS (5)
  1. FOSAMAX [Suspect]
     Indication: OSTEOPENIA
     Route: 048
     Dates: start: 19990501, end: 20010426
  2. FOSAMAX [Suspect]
     Route: 048
     Dates: start: 20010426, end: 20060620
  3. FOSAMAX [Suspect]
     Indication: OSTEOPOROSIS
     Route: 048
     Dates: start: 19990501, end: 20010426
  4. FOSAMAX [Suspect]
     Route: 048
     Dates: start: 20010426, end: 20060620
  5. BONIVA [Suspect]
     Route: 065

REACTIONS (33)
  - ABDOMINAL DISCOMFORT [None]
  - ABSCESS JAW [None]
  - ARTHRALGIA [None]
  - ARTHRITIS [None]
  - ARTHROPATHY [None]
  - BLOOD POTASSIUM DECREASED [None]
  - BLOOD PRESSURE INCREASED [None]
  - BONE DISORDER [None]
  - BREAST CANCER IN SITU [None]
  - CATARACT [None]
  - CHONDROPATHY [None]
  - DYSPEPSIA [None]
  - DYSPHAGIA [None]
  - EXOSTOSIS [None]
  - FRACTURE MALUNION [None]
  - GASTROOESOPHAGEAL REFLUX DISEASE [None]
  - HAEMORRHOIDS [None]
  - HYPERTENSION [None]
  - MENISCUS LESION [None]
  - MUSCLE SPASMS [None]
  - NOCTURIA [None]
  - NON-CARDIAC CHEST PAIN [None]
  - ONYCHOMYCOSIS [None]
  - OSTEOARTHRITIS [None]
  - OSTEOMYELITIS [None]
  - OSTEONECROSIS [None]
  - PARONYCHIA [None]
  - RASH [None]
  - TENDON RUPTURE [None]
  - TENDONITIS [None]
  - TENOSYNOVITIS [None]
  - TOOTH DISORDER [None]
  - TRIGGER FINGER [None]
